FAERS Safety Report 10249930 (Version 1)
Quarter: 2014Q2

REPORT INFORMATION
  Report Type: Spontaneous
  Country: ES (occurrence: None)
  Receive Date: 20140618
  Receipt Date: 20140618
  Transmission Date: 20141212
  Serious: Yes (Life-Threatening, Hospitalization)
  Sender: FDA-Public Use
  Company Number: None

PATIENT
  Age: 53 Year
  Sex: Female
  Weight: 70 kg

DRUGS (1)
  1. BRENTUXIMAB [Suspect]
     Indication: DRUG THERAPY
     Dates: start: 20140602

REACTIONS (2)
  - Asthenia [None]
  - Dyspnoea [None]
